FAERS Safety Report 8384252-1 (Version None)
Quarter: 2012Q2

REPORT INFORMATION
  Report Type: 
  Country: None (occurrence: None)
  Receive Date: 20120524
  Receipt Date: 20120515
  Transmission Date: 20120825
  Serious: Yes (Hospitalization, Disabling, Other)
  Sender: FDA-Public Use
  Company Number: US-MERCK-1108USA00315

PATIENT
  Age: 58 Year
  Sex: Female
  Weight: 79 kg

DRUGS (8)
  1. FOSAMAX [Suspect]
     Indication: OSTEOPOROSIS
     Route: 048
     Dates: start: 19980803, end: 20010401
  2. FOSAMAX [Suspect]
     Route: 048
     Dates: start: 20100101
  3. ALENDRONATE SODIUM [Suspect]
     Indication: OSTEOPENIA
     Route: 048
     Dates: start: 20080401, end: 20100801
  4. FOSAMAX [Suspect]
     Route: 048
     Dates: start: 20100101
  5. FOSAMAX [Suspect]
     Route: 048
     Dates: start: 20010401, end: 20080301
  6. PREDNISONE [Suspect]
     Indication: POLYMYALGIA RHEUMATICA
     Route: 048
     Dates: start: 19910101
  7. FOSAMAX [Suspect]
     Indication: OSTEOPENIA
     Route: 048
     Dates: start: 20010401, end: 20080301
  8. RECLAST [Suspect]
     Route: 051
     Dates: start: 20080101, end: 20100101

REACTIONS (89)
  - FOOT FRACTURE [None]
  - TIBIA FRACTURE [None]
  - METATARSALGIA [None]
  - SPLENIC ARTERY ANEURYSM [None]
  - MUSCULOSKELETAL CHEST PAIN [None]
  - VERTIGO [None]
  - SYNCOPE [None]
  - RADICULITIS [None]
  - MIGRAINE [None]
  - LABILE HYPERTENSION [None]
  - INTERVERTEBRAL DISC PROTRUSION [None]
  - BACK PAIN [None]
  - HAEMANGIOMA [None]
  - PULMONARY MASS [None]
  - TRANSIENT ISCHAEMIC ATTACK [None]
  - FOOT DEFORMITY [None]
  - BALANCE DISORDER [None]
  - DUPUYTREN'S CONTRACTURE [None]
  - HAND FRACTURE [None]
  - HEART RATE INCREASED [None]
  - BLOOD PARATHYROID HORMONE INCREASED [None]
  - PAIN IN EXTREMITY [None]
  - RIB FRACTURE [None]
  - SYNOVIAL CYST [None]
  - MUSCLE TIGHTNESS [None]
  - INSOMNIA [None]
  - BLOOD CALCIUM INCREASED [None]
  - CONVULSION [None]
  - HUMERUS FRACTURE [None]
  - RADIUS FRACTURE [None]
  - BUNION [None]
  - CARDIAC MURMUR [None]
  - HEPATIC CYST [None]
  - PANCREATIC MASS [None]
  - STRESS [None]
  - DIZZINESS [None]
  - ARTHROPATHY [None]
  - ALANINE AMINOTRANSFERASE INCREASED [None]
  - ACQUIRED CLAW TOE [None]
  - DEVICE FAILURE [None]
  - STRESS FRACTURE [None]
  - DEPRESSION [None]
  - OSTEOARTHRITIS [None]
  - CYST [None]
  - NEURALGIA [None]
  - SPINAL COLUMN STENOSIS [None]
  - SINUS DISORDER [None]
  - THYROID NEOPLASM [None]
  - HYPERHIDROSIS [None]
  - LIMB INJURY [None]
  - ARTHRITIS [None]
  - ANAEMIA POSTOPERATIVE [None]
  - HYPERGLYCAEMIA [None]
  - HIATUS HERNIA [None]
  - GASTROOESOPHAGEAL REFLUX DISEASE [None]
  - PSORIATIC ARTHROPATHY [None]
  - NERVE ROOT INJURY LUMBAR [None]
  - WEIGHT DECREASED [None]
  - TENDON DISORDER [None]
  - MEMORY IMPAIRMENT [None]
  - LUNG INFECTION [None]
  - MUSCLE STRAIN [None]
  - FALL [None]
  - ANAEMIA [None]
  - MALIGNANT MELANOMA [None]
  - ADRENAL INSUFFICIENCY [None]
  - DYSLIPIDAEMIA [None]
  - ADVERSE DRUG REACTION [None]
  - INTERVERTEBRAL DISC DEGENERATION [None]
  - HYPOTHYROIDISM [None]
  - ROTATOR CUFF SYNDROME [None]
  - RENAL FAILURE [None]
  - METABOLIC SYNDROME [None]
  - LABYRINTHITIS [None]
  - CONTUSION [None]
  - CARDIOVASCULAR DISORDER [None]
  - FEMUR FRACTURE [None]
  - WRIST FRACTURE [None]
  - ANXIETY [None]
  - PAIN [None]
  - COUGH [None]
  - NEURITIS [None]
  - SJOGREN'S SYNDROME [None]
  - VESTIBULAR NEURONITIS [None]
  - URINARY TRACT INFECTION [None]
  - RHINITIS ALLERGIC [None]
  - RHINITIS [None]
  - RESTLESS LEGS SYNDROME [None]
  - NAUSEA [None]
